FAERS Safety Report 12386821 (Version 3)
Quarter: 2016Q2

REPORT INFORMATION
  Report Type: Spontaneous
  Country: IT (occurrence: IT)
  Receive Date: 20160519
  Receipt Date: 20160605
  Transmission Date: 20160815
  Serious: Yes (Hospitalization)
  Sender: FDA-Public Use
  Company Number: IT-TEVA-660281ACC

PATIENT
  Age: 56 Year
  Sex: Female

DRUGS (9)
  1. ENTUMIN - 100 MG/ML - GOCCE ORALI SOLUZIONE [Suspect]
     Active Substance: CLOTHIAPINE
     Indication: SUICIDE ATTEMPT
     Dosage: 5 ML TOTAL
     Route: 048
     Dates: start: 20160421, end: 20160421
  2. AMLODIPINE BESYLATE. [Suspect]
     Active Substance: AMLODIPINE BESYLATE
     Indication: SUICIDE ATTEMPT
     Dosage: 40 MG TOTAL
     Route: 048
     Dates: start: 20160421, end: 20160421
  3. SERETIDE [Concomitant]
     Active Substance: FLUTICASONE PROPIONATE\SALMETEROL XINAFOATE
     Indication: PRODUCT USED FOR UNKNOWN INDICATION
     Dosage: 2 DF
     Route: 055
  4. DELORAZEPAM [Concomitant]
     Active Substance: DELORAZEPAM
     Indication: SCHIZOPHRENIA
     Dosage: 30 GTT
     Route: 048
  5. OXIBUTININA EG - 5 MG - COMPRESSE - EG S.P.A. [Suspect]
     Active Substance: OXYBUTYNIN
     Indication: SUICIDE ATTEMPT
     Dosage: 10 DF TOTAL
     Route: 048
     Dates: start: 20160421, end: 20160421
  6. OMEPRAZOLE. [Suspect]
     Active Substance: OMEPRAZOLE
     Indication: SUICIDE ATTEMPT
     Dosage: 7 DF TOTAL
     Route: 048
     Dates: start: 20160421, end: 20160421
  7. HALDOL [Suspect]
     Active Substance: HALOPERIDOL
     Indication: SUICIDE ATTEMPT
     Dosage: 20 GTT TOTAL
     Route: 048
     Dates: start: 20160421, end: 20160421
  8. AKINETON [Suspect]
     Active Substance: BIPERIDEN HYDROCHLORIDE
     Indication: SUICIDE ATTEMPT
     Dosage: 30 DF TOTAL
     Route: 048
     Dates: start: 20160421, end: 20160421
  9. SERENASE - 2 MG/ML - GOCCE ORALI SOLUZIONE - ISTITUTO LUSO FARMACO DI [Concomitant]
     Active Substance: HALOPERIDOL
     Indication: SCHIZOPHRENIA
     Dosage: 25 GTT
     Route: 048

REACTIONS (5)
  - Agitation [Recovered/Resolved]
  - Suicide attempt [Recovered/Resolved]
  - Aggression [Recovered/Resolved]
  - Self injurious behaviour [Recovered/Resolved]
  - Drug abuse [Recovered/Resolved]

NARRATIVE: CASE EVENT DATE: 20160421
